FAERS Safety Report 16867816 (Version 1)
Quarter: 2019Q3

REPORT INFORMATION
  Report Type: Spontaneous
  Country: BR (occurrence: BR)
  Receive Date: 20190930
  Receipt Date: 20190930
  Transmission Date: 20191005
  Serious: Yes (Other)
  Sender: FDA-Public Use
  Company Number: BR-OXFORD PHARMACEUTICALS, LLC-2019OXF00144

PATIENT
  Age: 71 Year
  Sex: Male

DRUGS (1)
  1. PRIMIDONE. [Suspect]
     Active Substance: PRIMIDONE
     Indication: ESSENTIAL TREMOR
     Dosage: 100 MG, 1X/DAY
     Route: 065

REACTIONS (3)
  - Dupuytren^s contracture [Not Recovered/Not Resolved]
  - Plantar fascial fibromatosis [Not Recovered/Not Resolved]
  - Peyronie^s disease [Not Recovered/Not Resolved]
